FAERS Safety Report 6914102-9 (Version None)
Quarter: 2010Q3

REPORT INFORMATION
  Report Type: 
  Country: None (occurrence: None)
  Receive Date: 20100806
  Receipt Date: 20100806
  Transmission Date: 20110219
  Serious: Yes (Hospitalization)
  Sender: FDA-Public Use
  Company Number: None

PATIENT
  Sex: Female
  Weight: 92.5338 kg

DRUGS (5)
  1. AZITHROMYCIN [Suspect]
     Indication: UPPER RESPIRATORY TRACT INFECTION
     Dosage: 250 MG 2 TABS 1ST DAY THEN 1 TAB DAILY 4 DAYS  047
     Route: 048
     Dates: start: 20100525, end: 20100529
  2. PREDNISONE [Concomitant]
  3. METHOTREXATE [Concomitant]
  4. LEOUCOVORIN [Concomitant]
  5. FOLIC ACID [Concomitant]

REACTIONS (3)
  - GENERAL PHYSICAL HEALTH DETERIORATION [None]
  - HEPATITIS [None]
  - TREMOR [None]
